FAERS Safety Report 6099625-X (Version None)
Quarter: 2009Q1

REPORT INFORMATION
  Report Type: 
  Country: None (occurrence: None)
  Receive Date: 20090226
  Receipt Date: 20090216
  Transmission Date: 20090719
  Serious: Yes (Hospitalization)
  Sender: FDA-Public Use
  Company Number: 2009-191538-NL

PATIENT
  Sex: Female

DRUGS (7)
  1. MIRTAZAPINE [Suspect]
     Dosage: 30 MG, ORAL
     Route: 048
     Dates: start: 20080625, end: 20081105
  2. CALCIUM CARBONATE [Concomitant]
  3. COLECALCIFEROL [Concomitant]
  4. COMBIVENT [Concomitant]
  5. OXAZEPAM [Concomitant]
  6. PARACETAMOL [Concomitant]
  7. STRONTIUM CHLORIDE [Concomitant]

REACTIONS (2)
  - FALL [None]
  - HYPONATRAEMIA [None]
